FAERS Safety Report 7952084-1 (Version None)
Quarter: 2011Q4

REPORT INFORMATION
  Report Type: 
  Country: None (occurrence: None)
  Receive Date: 20111201
  Receipt Date: 20111125
  Transmission Date: 20120403
  Serious: Yes (Death)
  Sender: FDA-Public Use
  Company Number: PHHY2010JP52334

PATIENT
  Sex: Male

DRUGS (7)
  1. PREDNISOLONE [Concomitant]
     Dosage: 5 MG, UNK
     Route: 048
  2. TASIGNA [Suspect]
     Dosage: 800 MG, UNK
     Route: 048
     Dates: end: 20100115
  3. USRO [Concomitant]
     Dosage: 300 MG, UNK
     Route: 048
  4. RABEPRAZOLE SODIUM [Concomitant]
     Dosage: 10 MG, UNK
  5. BISOPROLOL FUMARATE [Concomitant]
     Dosage: 5 MG, UNK
     Route: 048
  6. ALLOPURINOL [Concomitant]
     Dosage: 200 DF, UNK
     Route: 048
  7. CINALONG [Concomitant]
     Dosage: 10 MG, UNK
     Route: 048

REACTIONS (2)
  - BLAST CRISIS IN MYELOGENOUS LEUKAEMIA [None]
  - CHRONIC MYELOID LEUKAEMIA TRANSFORMATION [None]
